FAERS Safety Report 7462386-3 (Version None)
Quarter: 2011Q2

REPORT INFORMATION
  Report Type: 
  Country: None (occurrence: None)
  Receive Date: 20110506
  Receipt Date: 20110105
  Transmission Date: 20111010
  Serious: Yes (Hospitalization, Other)
  Sender: FDA-Public Use
  Company Number: US-BAYER-201029386NA

PATIENT
  Age: 35 Year
  Sex: Female
  Weight: 73 kg

DRUGS (12)
  1. PLAVIX [Concomitant]
  2. ALTACE [Concomitant]
     Dosage: UNK
     Dates: end: 20071101
  3. AMOXICILLIN [Concomitant]
  4. ASPIRIN [Concomitant]
     Dosage: UNK
     Dates: end: 20071101
  5. LOPRESSOR [Concomitant]
  6. IBUPROFEN [Concomitant]
  7. VITAMIN C [Concomitant]
  8. YAZ [Suspect]
     Indication: PRODUCT USED FOR UNKNOWN INDICATION
     Dosage: UNK
     Route: 048
     Dates: start: 20060701, end: 20071001
  9. ASPIRIN [Concomitant]
  10. LIPITOR [Concomitant]
     Dosage: UNK
     Dates: end: 20071101
  11. METOPROLOL [Concomitant]
  12. ZITHROMAX [Concomitant]

REACTIONS (1)
  - MYOCARDIAL INFARCTION [None]
